FAERS Safety Report 9222213 (Version 2)
Quarter: 2013Q3

REPORT INFORMATION
  Report Type: Spontaneous
  Country: US (occurrence: None)
  Receive Date: 20130408
  Receipt Date: 20130925
  Transmission Date: 20140515
  Serious: Yes (Death)
  Sender: FDA-Public Use
  Company Number: ACO_35218_2013

PATIENT
  Age: 77 Year
  Sex: Male

DRUGS (8)
  1. AMPYRA [Suspect]
     Indication: PRODUCT USED FOR UNKNOWN INDICATION
     Route: 048
     Dates: start: 20100512, end: 20130225
  2. AMPYRA [Suspect]
     Indication: MULTIPLE SCLEROSIS
     Route: 048
     Dates: start: 20100512, end: 20130225
  3. VYVANSE [Concomitant]
  4. VALIUM [Concomitant]
  5. BACLOFEN [Concomitant]
  6. PROZAC [Concomitant]
  7. HYDROCHLOROTHIAZIDE [Concomitant]
  8. POTASSIUM CITRATE [Concomitant]

REACTIONS (1)
  - Myocardial infarction [None]
